FAERS Safety Report 6706248-5 (Version None)
Quarter: 2010Q2

REPORT INFORMATION
  Report Type: 
  Country: None (occurrence: None)
  Receive Date: 20100503
  Receipt Date: 20100423
  Transmission Date: 20101027
  Serious: Yes (Hospitalization)
  Sender: FDA-Public Use
  Company Number: DE-PFIZER INC-2009217784

PATIENT
  Age: 59 Year
  Sex: Female
  Weight: 70 kg

DRUGS (6)
  1. NORVASC [Interacting]
     Indication: HYPERTENSION
     Dosage: 5 MG, 1X/DAY
     Route: 048
     Dates: start: 20070801
  2. SPIRIVA [Suspect]
     Indication: CHRONIC OBSTRUCTIVE PULMONARY DISEASE
     Dosage: 18 UG, 2X/DAY
     Route: 055
     Dates: start: 20020101
  3. BEROTEC [Suspect]
     Dosage: 100 UG, UNK
     Route: 055
     Dates: start: 20020101, end: 20090426
  4. PANTOZOL [Concomitant]
     Indication: PROPHYLAXIS AGAINST GASTROINTESTINAL ULCER
     Dosage: 40 MG, 1X/DAY
     Route: 048
     Dates: start: 20070801
  5. ATACAND [Concomitant]
     Indication: HYPERTENSION
     Dosage: 16 MG, 2X/DAY
     Route: 048
     Dates: start: 20070801
  6. ACC 200 [Concomitant]
     Indication: CHRONIC OBSTRUCTIVE PULMONARY DISEASE
     Dosage: 200 MG, 3X/DAY
     Route: 048

REACTIONS (2)
  - DRUG INTERACTION [None]
  - TACHYCARDIA [None]
